FAERS Safety Report 8793670 (Version 1)
Quarter: 2012Q4

REPORT INFORMATION
  Report Type: 
  Country: US (occurrence: US)
  Receive Date: 20120917
  Receipt Date: 20120917
  Transmission Date: 20130627
  Serious: No
  Sender: FDA-Public Use
  Company Number: US-FOUGERA-2012FO001211

PATIENT
  Age: 21 Year
  Sex: Male

DRUGS (1)
  1. IMIQUIMOD [Suspect]
     Indication: ANOGENITAL WARTS
     Route: 061
     Dates: start: 20120606, end: 20120608

REACTIONS (3)
  - Application site pain [Unknown]
  - Application site erythema [Unknown]
  - Application site erosion [Unknown]
